FAERS Safety Report 25445065 (Version 1)
Quarter: 2025Q2

REPORT INFORMATION
  Report Type: Spontaneous
  Country: AU (occurrence: AU)
  Receive Date: 20250617
  Receipt Date: 20250617
  Transmission Date: 20250717
  Serious: Yes (Other)
  Sender: RANBAXY
  Company Number: AU-SUN PHARMACEUTICAL INDUSTRIES INC-2025RR-511907

PATIENT
  Age: 52 Year
  Sex: Male

DRUGS (3)
  1. PERINDOPRIL [Suspect]
     Active Substance: PERINDOPRIL
     Indication: Proteinuria
     Route: 065
  2. WARFARIN [Suspect]
     Active Substance: WARFARIN
     Indication: Prophylaxis
     Route: 065
  3. PREDNISONE [Suspect]
     Active Substance: PREDNISONE
     Indication: Proteinuria
     Route: 065

REACTIONS (3)
  - Dizziness [Unknown]
  - Neuralgia [Unknown]
  - Drug tolerance decreased [Unknown]
